FAERS Safety Report 20256925 (Version 3)
Quarter: 2022Q1

REPORT INFORMATION
  Report Type: Spontaneous
  Country: AU (occurrence: AU)
  Receive Date: 20211230
  Receipt Date: 20220118
  Transmission Date: 20220423
  Serious: Yes (Hospitalization)
  Sender: FDA-Public Use
  Company Number: AU-PFIZER INC-202101872872

PATIENT
  Age: 62 Year
  Sex: Male

DRUGS (4)
  1. SILDENAFIL CITRATE [Suspect]
     Active Substance: SILDENAFIL CITRATE
     Indication: Erectile dysfunction
     Dosage: ALTERNATE DAILY DOSE OF SILDENAFIL AND TADALAFIL
  2. TADALAFIL [Suspect]
     Active Substance: TADALAFIL
     Indication: Erectile dysfunction
     Dosage: ALTERNATE DAILY DOSE OF SILDENAFIL AND TADALAFIL
  3. PALIPERIDONE [Concomitant]
     Active Substance: PALIPERIDONE
     Indication: Acute psychosis
     Dosage: UNK
     Dates: start: 2019
  4. VALPROATE MAGNESIUM [Concomitant]
     Active Substance: VALPROATE MAGNESIUM
     Indication: Erectile dysfunction
     Dosage: UNK

REACTIONS (5)
  - Insulin autoimmune syndrome [Recovered/Resolved]
  - Hyperinsulinaemic hypoglycaemia [Recovered/Resolved]
  - Generalised tonic-clonic seizure [Recovered/Resolved]
  - Dementia [Unknown]
  - Intentional product misuse [Recovered/Resolved]

NARRATIVE: CASE EVENT DATE: 20190101
